FAERS Safety Report 7632208-6 (Version None)
Quarter: 2011Q3

REPORT INFORMATION
  Report Type: 
  Country: None (occurrence: None)
  Receive Date: 20110725
  Receipt Date: 20100614
  Transmission Date: 20111222
  Serious: No
  Sender: FDA-Public Use
  Company Number: US-BRISTOL-MYERS SQUIBB COMPANY-15149701

PATIENT
  Age: 82 Year
  Sex: Female

DRUGS (3)
  1. BETAPACE [Suspect]
     Indication: ARRHYTHMIA
  2. MULTAQ [Suspect]
     Indication: ATRIAL FIBRILLATION
     Route: 048
     Dates: start: 20100101
  3. COUMADIN [Suspect]
     Dates: start: 20100101

REACTIONS (2)
  - INTERNATIONAL NORMALISED RATIO INCREASED [None]
  - DRUG INEFFECTIVE [None]
